FAERS Safety Report 4972107-1 (Version None)
Quarter: 2006Q2

REPORT INFORMATION
  Report Type: 
  Country: None (occurrence: None)
  Receive Date: 20060412
  Receipt Date: 20060412
  Transmission Date: 20061013
  Serious: Yes (Death)
  Sender: FDA-Public Use
  Company Number: None

PATIENT
  Age: 11 Year
  Sex: Female

DRUGS (3)
  1. CLOMIPRAMINE HCL [Suspect]
     Indication: AUTISM
  2. CLOMIPRAMINE HCL [Suspect]
     Indication: OBSESSIVE-COMPULSIVE DISORDER
  3. CLONIDINE [Concomitant]

REACTIONS (10)
  - BLOOD DISORDER [None]
  - CANDIDIASIS [None]
  - LEUKOPENIA [None]
  - LYMPHOPENIA [None]
  - MICROCYTIC ANAEMIA [None]
  - MONOCYTE COUNT INCREASED [None]
  - NEUTROPENIA [None]
  - PNEUMONIA [None]
  - SEPTIC SHOCK [None]
  - STREPTOCOCCAL INFECTION [None]
